FAERS Safety Report 4267180-2 (Version None)
Quarter: 2004Q1

REPORT INFORMATION
  Report Type: 
  Country: None (occurrence: None)
  Receive Date: 20040107
  Receipt Date: 20031223
  Transmission Date: 20041129
  Serious: Yes (Other)
  Sender: FDA-Public Use
  Company Number: S03-FRA-05358-01

PATIENT
  Age: 87 Year
  Sex: Female

DRUGS (5)
  1. EBIXA (MEMANTINE) [Suspect]
     Dates: start: 20030301
  2. TANAKAN (GINKGO BILOBA EXTRACT) [Concomitant]
  3. ANTIDIURETIC DRUGS [Concomitant]
  4. BETA-BLOCKING AGENT [Concomitant]
  5. ACE INHIBITORS [Concomitant]

REACTIONS (1)
  - RENAL FAILURE [None]
